APPROVED DRUG PRODUCT: XIMINO
Active Ingredient: MINOCYCLINE HYDROCHLORIDE
Strength: EQ 112.5MG BASE
Dosage Form/Route: CAPSULE, EXTENDED RELEASE;ORAL
Application: N201922 | Product #004
Applicant: JOURNEY MEDICAL CORP
Approved: Jul 11, 2012 | RLD: No | RS: No | Type: DISCN